FAERS Safety Report 7483876-3 (Version None)
Quarter: 2011Q2

REPORT INFORMATION
  Report Type: 
  Country: None (occurrence: None)
  Receive Date: 20110517
  Receipt Date: 20110514
  Transmission Date: 20111010
  Serious: Yes (Death, Hospitalization, Other)
  Sender: FDA-Public Use
  Company Number: PHHY2011MX40389

PATIENT
  Sex: Female

DRUGS (1)
  1. DIOVAN HCT [Suspect]
     Indication: HYPERTENSION
     Dosage: 160 MG VALSARTAN AND 25 MG HYDRO (1 DF DAILY)
     Route: 048
     Dates: start: 20070706

REACTIONS (5)
  - NERVOUS SYSTEM DISORDER [None]
  - BLOOD PRESSURE INCREASED [None]
  - CEREBRAL ARTERY EMBOLISM [None]
  - CARDIAC ARREST [None]
  - INTRACRANIAL ANEURYSM [None]
